FAERS Safety Report 12176275 (Version 1)
Quarter: 2016Q1

REPORT INFORMATION
  Report Type: Spontaneous
  Country: IT (occurrence: IT)
  Receive Date: 20160315
  Receipt Date: 20160315
  Transmission Date: 20160526
  Serious: Yes (Other)
  Sender: FDA-Public Use
  Company Number: IT-ROCHE-1725354

PATIENT
  Age: 53 Year
  Sex: Female

DRUGS (5)
  1. PAFINUR [Concomitant]
  2. VILANTEROL [Concomitant]
     Dosage: 184/22 UG
     Route: 065
  3. FLUTICASONE FUROATE/VILANTEROL TRIFENATATE [Concomitant]
  4. MEDROL [Suspect]
     Active Substance: METHYLPREDNISOLONE
     Indication: ASTHMA
     Route: 065
     Dates: start: 20150101, end: 20150701
  5. XOLAIR [Suspect]
     Active Substance: OMALIZUMAB
     Indication: ASTHMA
     Route: 042
     Dates: start: 20150301, end: 20151101

REACTIONS (5)
  - Asthma [Unknown]
  - Allergic granulomatous angiitis [Unknown]
  - Paraesthesia [Unknown]
  - Joint stiffness [Unknown]
  - Peripheral swelling [Unknown]

NARRATIVE: CASE EVENT DATE: 20150801
